FAERS Safety Report 10225267 (Version 2)
Quarter: 2014Q4

REPORT INFORMATION
  Report Type: Spontaneous
  Country: US (occurrence: US)
  Receive Date: 20140609
  Receipt Date: 20141001
  Transmission Date: 20150528
  Serious: No
  Sender: FDA-Public Use
  Company Number: US-GILEAD-2014-0104559

PATIENT
  Age: 59 Year
  Sex: Female

DRUGS (9)
  1. WARFARIN [Concomitant]
     Active Substance: WARFARIN
  2. LETAIRIS [Suspect]
     Active Substance: AMBRISENTAN
     Indication: PULMONARY ARTERIAL HYPERTENSION
     Dosage: 5 MG, QD
     Route: 065
     Dates: start: 20140218
  3. METOPROLOL [Concomitant]
     Active Substance: METOPROLOL
     Dosage: 200 MG, UNK
  4. NOVOLIN [Concomitant]
     Active Substance: INSULIN HUMAN
  5. METOPROLOL [Concomitant]
     Active Substance: METOPROLOL
     Dosage: 25 MG, UNK
  6. SENSIPAR [Concomitant]
     Active Substance: CINACALCET HYDROCHLORIDE
  7. LETAIRIS [Suspect]
     Active Substance: AMBRISENTAN
     Dosage: 10 UNK, UNK
     Route: 065
  8. SILDENAFIL. [Concomitant]
     Active Substance: SILDENAFIL
  9. GABAPENTIN. [Concomitant]
     Active Substance: GABAPENTIN

REACTIONS (1)
  - Hypotension [Unknown]

NARRATIVE: CASE EVENT DATE: 20140501
